FAERS Safety Report 16788841 (Version 2)
Quarter: 2019Q3

REPORT INFORMATION
  Report Type: Spontaneous
  Country: IT (occurrence: IT)
  Receive Date: 20190910
  Receipt Date: 20190919
  Transmission Date: 20191005
  Serious: Yes (Other)
  Sender: FDA-Public Use
  Company Number: IT-AUROBINDO-AUR-APL-2019-059331

PATIENT
  Age: 12 Month
  Sex: Male

DRUGS (5)
  1. MELPHALAN INJECTION [Suspect]
     Active Substance: MELPHALAN
     Indication: RETINOBLASTOMA
     Dosage: 5 MILLIGRAM,THRICE A WEEK
     Route: 013
  2. TOPOTECAN HYDROCHLORIDE. [Suspect]
     Active Substance: TOPOTECAN HYDROCHLORIDE
     Indication: PRODUCT USED FOR UNKNOWN INDICATION
     Dosage: 1 WEEK,1 INJECTION 1 WEEK AFTER IA
     Route: 031
  3. TOPOTECAN HYDROCHLORIDE. [Suspect]
     Active Substance: TOPOTECAN HYDROCHLORIDE
     Indication: RETINOBLASTOMA
     Dosage: UNK,0.3-2 MG, THRICE IN A WEEK
     Route: 013
  4. MELPHALAN INJECTION [Suspect]
     Active Substance: MELPHALAN
     Dosage: 30 MICROGRAM, EVERY WEEK
     Route: 031
  5. CARBOPLATIN. [Suspect]
     Active Substance: CARBOPLATIN
     Indication: RETINOBLASTOMA
     Dosage: 30 MILLIGRAM, THRICE IN A WEEK
     Route: 013

REACTIONS (2)
  - Chorioretinal atrophy [Unknown]
  - Product use in unapproved indication [Unknown]
